FAERS Safety Report 13947712 (Version 2)
Quarter: 2017Q3

REPORT INFORMATION
  Report Type: Spontaneous
  Country: JP (occurrence: JP)
  Receive Date: 20170908
  Receipt Date: 20170910
  Transmission Date: 20171128
  Serious: Yes (Hospitalization)
  Sender: FDA-Public Use
  Company Number: JP-ROCHE-1989710

PATIENT
  Age: 68 Year
  Sex: Male
  Weight: 49 kg

DRUGS (10)
  1. ALIMTA [Concomitant]
     Active Substance: PEMETREXED DISODIUM
     Indication: LUNG NEOPLASM MALIGNANT
     Route: 041
     Dates: end: 20170823
  2. DEXART [Concomitant]
     Active Substance: DEXAMETHASONE SODIUM PHOSPHATE
     Route: 065
  3. DOMPERIDONE [Concomitant]
     Active Substance: DOMPERIDONE
     Route: 065
  4. TENELIA [Concomitant]
     Active Substance: TENELIGLIPTIN
     Route: 065
  5. TELMISARTAN. [Concomitant]
     Active Substance: TELMISARTAN
     Route: 065
  6. AVASTIN [Suspect]
     Active Substance: BEVACIZUMAB
     Indication: LUNG NEOPLASM MALIGNANT
     Dosage: MOST RECENT DOSE: 23/AUG/2017
     Route: 041
     Dates: start: 20170411
  7. METHYCOBAL [Concomitant]
     Active Substance: METHYLCOBALAMIN
     Route: 065
  8. BENIDIPINE HYDROCHLORIDE [Concomitant]
     Active Substance: BENIDIPINE HYDROCHLORIDE
     Route: 065
  9. G-LASTA [Concomitant]
     Active Substance: PEGFILGRASTIM
     Route: 065
  10. EMEND [Concomitant]
     Active Substance: APREPITANT
     Route: 065

REACTIONS (2)
  - Haematemesis [Unknown]
  - Gastrointestinal haemorrhage [Unknown]

NARRATIVE: CASE EVENT DATE: 20170831
